FAERS Safety Report 11728713 (Version 1)
Quarter: 2015Q4

REPORT INFORMATION
  Report Type: Spontaneous
  Country: GB (occurrence: GB)
  Receive Date: 20151112
  Receipt Date: 20151112
  Transmission Date: 20160304
  Serious: Yes (Hospitalization, Other)
  Sender: FDA-Public Use
  Company Number: GB-SA-2015SA174838

PATIENT
  Age: 44 Year
  Sex: Male

DRUGS (8)
  1. COCODAMOL [Concomitant]
     Active Substance: ACETAMINOPHEN\CODEINE PHOSPHATE
  2. IBUPROFEN. [Concomitant]
     Active Substance: IBUPROFEN
  3. RIFINAH [Suspect]
     Active Substance: ISONIAZID\RIFAMPIN
     Indication: TUBERCULOSIS
     Dosage: STRENGTH- RIFAMPICIN 300MG+ISONIAZID 150 MG
     Route: 048
     Dates: start: 200109, end: 200110
  4. RIFINAH [Suspect]
     Active Substance: ISONIAZID\RIFAMPIN
     Indication: PROPHYLAXIS
     Route: 048
  5. RIFINAH [Suspect]
     Active Substance: ISONIAZID\RIFAMPIN
     Indication: PROPHYLAXIS
     Dosage: STRENGTH- RIFAMPICIN 300MG+ISONIAZID 150 MG
     Route: 048
     Dates: start: 200109, end: 200110
  6. RIFINAH [Suspect]
     Active Substance: ISONIAZID\RIFAMPIN
     Indication: PROPHYLAXIS
     Route: 048
     Dates: start: 200110
  7. RIFINAH [Suspect]
     Active Substance: ISONIAZID\RIFAMPIN
     Indication: TUBERCULOSIS
     Route: 048
  8. RIFINAH [Suspect]
     Active Substance: ISONIAZID\RIFAMPIN
     Indication: TUBERCULOSIS
     Route: 048
     Dates: start: 200110

REACTIONS (19)
  - Polyneuropathy [Unknown]
  - Paraesthesia [Unknown]
  - Burning sensation [Unknown]
  - Hepatitis [Not Recovered/Not Resolved]
  - Liver function test abnormal [Unknown]
  - Asthenia [Unknown]
  - Syncope [Unknown]
  - Malaise [Unknown]
  - Postural orthostatic tachycardia syndrome [Unknown]
  - Palpitations [Unknown]
  - Pruritus [Unknown]
  - Prescribed overdose [Unknown]
  - Food aversion [Unknown]
  - Dyspnoea [Unknown]
  - Lethargy [Unknown]
  - Biliary cirrhosis primary [Unknown]
  - Dizziness [Unknown]
  - Nausea [Unknown]
  - Muscle spasms [Unknown]

NARRATIVE: CASE EVENT DATE: 2001
